FAERS Safety Report 8387538-X (Version None)
Quarter: 2012Q2

REPORT INFORMATION
  Report Type: 
  Country: None (occurrence: None)
  Receive Date: 20120525
  Receipt Date: 20120522
  Transmission Date: 20120825
  Serious: Yes (Other)
  Sender: FDA-Public Use
  Company Number: PHEH2012US009885

PATIENT
  Sex: Male

DRUGS (5)
  1. TEKTURNA [Suspect]
     Indication: HYPERTENSION
     Dosage: 300 MG, QD
  2. AVODART [Concomitant]
     Dosage: UNK
  3. AMLODIPINE BESYLATE [Concomitant]
     Dosage: UNK
  4. LIPITOR [Concomitant]
     Dosage: UNK
  5. FLOMAX [Concomitant]
     Dosage: UNK

REACTIONS (3)
  - NEPHROLITHIASIS [None]
  - RENAL FAILURE [None]
  - CALCULUS BLADDER [None]
